FAERS Safety Report 20205926 (Version 1)
Quarter: 2021Q4

REPORT INFORMATION
  Report Type: Spontaneous
  Country: US (occurrence: US)
  Receive Date: 20211220
  Receipt Date: 20211220
  Transmission Date: 20220303
  Serious: Yes (Other)
  Sender: FDA-Public Use
  Company Number: US-CELGENE-USA-20211204688

PATIENT
  Sex: Female
  Weight: 93.070 kg

DRUGS (2)
  1. REVLIMID [Suspect]
     Active Substance: LENALIDOMIDE
     Indication: Plasma cell myeloma
     Dosage: QD 21/7
     Route: 048
     Dates: start: 202103
  2. REVLIMID [Suspect]
     Active Substance: LENALIDOMIDE
     Dosage: QD 21/7
     Route: 048
     Dates: start: 202111

REACTIONS (3)
  - Pneumonia [Unknown]
  - COVID-19 [Unknown]
  - Joint stiffness [Unknown]
